FAERS Safety Report 9540185 (Version 2)
Quarter: 2013Q4

REPORT INFORMATION
  Report Type: Spontaneous
  Country: US (occurrence: US)
  Receive Date: 20130920
  Receipt Date: 20131031
  Transmission Date: 20140711
  Serious: Yes (Other)
  Sender: FDA-Public Use
  Company Number: US-BRISTOL-MYERS SQUIBB COMPANY-19375526

PATIENT
  Age: 71 Year
  Sex: Female
  Weight: 48.98 kg

DRUGS (4)
  1. ELIQUIS [Suspect]
     Indication: ATRIAL FIBRILLATION
     Dates: start: 20130524
  2. CARVEDILOL [Concomitant]
  3. DIGOXIN [Concomitant]
  4. ATORVASTATIN [Concomitant]

REACTIONS (5)
  - Transient ischaemic attack [Unknown]
  - Headache [Unknown]
  - Paraesthesia [Unknown]
  - Hot flush [Unknown]
  - Hepatic enzyme increased [Unknown]
